FAERS Safety Report 12138285 (Version 2)
Quarter: 2016Q3

REPORT INFORMATION
  Report Type: Spontaneous
  Country: US (occurrence: US)
  Receive Date: 20160302
  Receipt Date: 20160705
  Transmission Date: 20161109
  Serious: Yes (Hospitalization, Other)
  Sender: FDA-Public Use
  Company Number: US-BAYER-2016-040724

PATIENT
  Age: 25 Year
  Sex: Female
  Weight: 65.76 kg

DRUGS (6)
  1. MOTRIN [Concomitant]
     Active Substance: IBUPROFEN
  2. VITAMIN C [Concomitant]
     Active Substance: ASCORBIC ACID
  3. PERCOCET [Concomitant]
     Active Substance: ACETAMINOPHEN\OXYCODONE HYDROCHLORIDE
  4. IRON [Concomitant]
     Active Substance: IRON
  5. MIRENA [Suspect]
     Active Substance: LEVONORGESTREL
     Indication: CONTRACEPTION
     Dosage: 20 MCG/24HR, CONT
     Route: 015
     Dates: start: 20080731, end: 20090511
  6. SURFAK [Concomitant]

REACTIONS (9)
  - Device dislocation [None]
  - Depression [None]
  - Anxiety [None]
  - Drug ineffective [None]
  - Pain [None]
  - Ruptured ectopic pregnancy [None]
  - Uterine perforation [None]
  - Ectopic pregnancy with contraceptive device [None]
  - Device issue [None]

NARRATIVE: CASE EVENT DATE: 20081125
